FAERS Safety Report 5656810-6 (Version None)
Quarter: 2008Q1

REPORT INFORMATION
  Report Type: 
  Country: None (occurrence: None)
  Receive Date: 20080219
  Receipt Date: 20071031
  Transmission Date: 20080703
  Serious: No
  Sender: FDA-Public Use
  Company Number: WAES 0711USA00181

PATIENT
  Age: 61 Year
  Sex: Female

DRUGS (4)
  1. JANUVIA [Suspect]
     Indication: TYPE 2 DIABETES MELLITUS
     Dosage: 100 MG/DAILY/PO
     Route: 048
     Dates: start: 20070926, end: 20071030
  2. AMARYL [Concomitant]
  3. LIPITOR [Concomitant]
  4. METFORMIN [Concomitant]

REACTIONS (6)
  - DYSPNOEA [None]
  - EYE IRRITATION [None]
  - HEADACHE [None]
  - INFLUENZA LIKE ILLNESS [None]
  - NASAL CONGESTION [None]
  - OEDEMA PERIPHERAL [None]
